FAERS Safety Report 4851138-6 (Version None)
Quarter: 2005Q4

REPORT INFORMATION
  Report Type: 
  Country: None (occurrence: None)
  Receive Date: 20051212
  Receipt Date: 20051205
  Transmission Date: 20060501
  Serious: Yes (Hospitalization)
  Sender: FDA-Public Use
  Company Number: US-BRISTOL-MYERS SQUIBB COMPANY-13205273

PATIENT
  Age: 68 Year
  Sex: Male

DRUGS (12)
  1. CETUXIMAB [Suspect]
     Indication: NON-SMALL CELL LUNG CANCER
     Dosage: COURSE 1. INTERRUPTED, DOSE REDUCED TO LEVEL 1 ADMINISTERED 07-DEC-2005.
     Route: 042
     Dates: start: 20051116, end: 20051116
  2. CARBOPLATIN [Suspect]
     Indication: NON-SMALL CELL LUNG CANCER
     Dosage: COURSE 1
     Route: 042
     Dates: start: 20051116, end: 20051116
  3. TAXOL [Suspect]
     Indication: NON-SMALL CELL LUNG CANCER
     Dosage: COURSE 1. DOSE REDUCED 1 LEVEL.
     Route: 042
     Dates: start: 20051116, end: 20051116
  4. LIPITOR [Concomitant]
  5. COREG [Concomitant]
  6. LANOXIN [Concomitant]
  7. LISINOPRIL [Concomitant]
  8. NIACIN [Concomitant]
  9. DARVOCET-N 100 [Concomitant]
     Indication: CHEST PAIN
  10. NITROGLYCERIN [Concomitant]
     Indication: CHEST PAIN
  11. IMODIUM [Concomitant]
     Indication: DIARRHOEA
  12. ASPIRIN [Concomitant]

REACTIONS (1)
  - COLITIS [None]
